FAERS Safety Report 10296592 (Version 1)
Quarter: 2014Q3

REPORT INFORMATION
  Report Type: Spontaneous
  Country: US (occurrence: None)
  Receive Date: 20140708
  Receipt Date: 20140708
  Transmission Date: 20150326
  Serious: Yes (Other)
  Sender: FDA-Public Use
  Company Number: 2014060079

PATIENT
  Age: 79 Year
  Sex: Female
  Weight: 60.78 kg

DRUGS (1)
  1. AZELASTINE HYDROCHLORIDE. [Suspect]
     Active Substance: AZELASTINE HYDROCHLORIDE
     Dosage: (TWICE DAILY AS NEEDED), OPHTHALMIC
     Route: 047
     Dates: start: 201312, end: 201312

REACTIONS (4)
  - Skin ulcer [None]
  - Peripheral swelling [None]
  - Skin disorder [None]
  - Pain [None]

NARRATIVE: CASE EVENT DATE: 201312
